FAERS Safety Report 21774556 (Version 2)
Quarter: 2023Q1

REPORT INFORMATION
  Report Type: Spontaneous
  Country: JP (occurrence: JP)
  Receive Date: 20221224
  Receipt Date: 20230214
  Transmission Date: 20230417
  Serious: No
  Sender: FDA-Public Use
  Company Number: JP-AMGEN-JPNSP2022218858

PATIENT
  Age: 66 Year
  Sex: Female

DRUGS (3)
  1. LUMAKRAS [Suspect]
     Active Substance: SOTORASIB
     Indication: Non-small cell lung cancer recurrent
     Dosage: 960 MILLIGRAM
     Route: 048
     Dates: start: 20220809
  2. LUMAKRAS [Suspect]
     Active Substance: SOTORASIB
     Dosage: 720 MILLIGRAM
     Route: 048
  3. LUMAKRAS [Suspect]
     Active Substance: SOTORASIB
     Dosage: UNK
     Route: 048
     Dates: start: 20230110

REACTIONS (4)
  - Therapy partial responder [Unknown]
  - Diarrhoea [Recovered/Resolved]
  - Aspartate aminotransferase increased [Recovered/Resolved]
  - Alanine aminotransferase increased [Recovered/Resolved]

NARRATIVE: CASE EVENT DATE: 20221214
